FAERS Safety Report 23521748 (Version 1)
Quarter: 2024Q1

REPORT INFORMATION
  Report Type: Spontaneous
  Country: US (occurrence: None)
  Receive Date: 20240213
  Receipt Date: 20240213
  Transmission Date: 20240409
  Serious: No
  Sender: FDA-Public Use
  Company Number: None

PATIENT
  Age: 70 Year
  Sex: Female
  Weight: 62.14 kg

DRUGS (1)
  1. HUMIRA [Suspect]
     Active Substance: ADALIMUMAB
     Dosage: FREQUENCY : AS DIRECTED;?
     Dates: start: 202312

REACTIONS (5)
  - Influenza [None]
  - Tachycardia [None]
  - Diverticulitis [None]
  - Gastrointestinal disorder [None]
  - Therapy interrupted [None]
